FAERS Safety Report 25322627 (Version 3)
Quarter: 2025Q3

REPORT INFORMATION
  Report Type: Spontaneous
  Country: BR (occurrence: BR)
  Receive Date: 20250516
  Receipt Date: 20250803
  Transmission Date: 20251020
  Serious: No
  Sender: ALEXION PHARMACEUTICALS
  Company Number: BR-AstraZeneca-CH-00868117A

PATIENT
  Sex: Female

DRUGS (3)
  1. XIGDUO XR [Suspect]
     Active Substance: DAPAGLIFLOZIN PROPANEDIOL\METFORMIN HYDROCHLORIDE
     Dosage: 10/1000MG, QD
     Route: 065
  2. ASTRAZENECA COVID-19 VACCINE [Suspect]
     Active Substance: AZD-1222
     Indication: COVID-19 prophylaxis
  3. ASTRAZENECA COVID-19 VACCINE [Suspect]
     Active Substance: AZD-1222

REACTIONS (5)
  - Drug ineffective [Recovering/Resolving]
  - Headache [Recovering/Resolving]
  - Urine output increased [Unknown]
  - Blood glucose abnormal [Recovering/Resolving]
  - Asthenia [Unknown]
